FAERS Safety Report 4660287-7 (Version None)
Quarter: 2005Q2

REPORT INFORMATION
  Report Type: 
  Country: None (occurrence: None)
  Receive Date: 20050427
  Receipt Date: 20050209
  Transmission Date: 20051028
  Serious: No
  Sender: FDA-Public Use
  Company Number: 212342

PATIENT

DRUGS (1)
  1. XOLAIR [Suspect]
     Dosage: 150 MG, 2/MONTH, SUBCUTANEOUS
     Route: 058

REACTIONS (2)
  - INJECTION SITE PRURITUS [None]
  - INJECTION SITE REACTION [None]
